FAERS Safety Report 20156509 (Version 4)
Quarter: 2021Q4

REPORT INFORMATION
  Report Type: Spontaneous
  Country: AU (occurrence: AU)
  Receive Date: 20211207
  Receipt Date: 20211228
  Transmission Date: 20220303
  Serious: Yes (Other)
  Sender: FDA-Public Use
  Company Number: AU-MYLANLABS-2021M1089892

PATIENT
  Age: 58 Year
  Sex: Male

DRUGS (1)
  1. CLOZARIL [Suspect]
     Active Substance: CLOZAPINE
     Indication: Schizophrenia
     Dosage: 200 MILLIGRAM
     Route: 048
     Dates: start: 20201021

REACTIONS (7)
  - Hepatocellular carcinoma [Unknown]
  - Hepatic cirrhosis [Unknown]
  - Hepatitis C [Unknown]
  - Cytopenia [Unknown]
  - Neutrophil count decreased [Not Recovered/Not Resolved]
  - Hypersplenism [Unknown]
  - White blood cell count decreased [Not Recovered/Not Resolved]

NARRATIVE: CASE EVENT DATE: 20211130
